FAERS Safety Report 12424139 (Version 1)
Quarter: 2016Q2

REPORT INFORMATION
  Report Type: Spontaneous
  Country: US (occurrence: None)
  Receive Date: 20160531
  Receipt Date: 20160531
  Transmission Date: 20160815
  Serious: No
  Sender: FDA-Public Use
  Company Number: None

PATIENT
  Age: 56 Year
  Sex: Male

DRUGS (3)
  1. IMATINIB MES 400MG TAB NOVARTIS [Suspect]
     Active Substance: IMATINIB
     Indication: LEUKAEMIA
     Dosage: 1 TAB QD PO
     Route: 048
     Dates: start: 20160407
  2. BUMETANIDE. [Suspect]
     Active Substance: BUMETANIDE
  3. LASIX [Concomitant]
     Active Substance: FUROSEMIDE

REACTIONS (1)
  - Weight increased [None]

NARRATIVE: CASE EVENT DATE: 201605
